FAERS Safety Report 4303430-1 (Version None)
Quarter: 2004Q1

REPORT INFORMATION
  Report Type: 
  Country: None (occurrence: None)
  Receive Date: 20040223
  Receipt Date: 20040208
  Transmission Date: 20041129
  Serious: Yes (Death)
  Sender: FDA-Public Use
  Company Number: 2004007834

PATIENT

DRUGS (2)
  1. GEODON [Suspect]
     Indication: SCHIZOPHRENIA
  2. RISPERIDONE [Suspect]
     Indication: SCHIZOPHRENIA

REACTIONS (1)
  - COMPLETED SUICIDE [None]
